FAERS Safety Report 22826918 (Version 2)
Quarter: 2024Q1

REPORT INFORMATION
  Report Type: Spontaneous
  Country: FR (occurrence: FR)
  Receive Date: 20230816
  Receipt Date: 20240122
  Transmission Date: 20240410
  Serious: Yes (Hospitalization, Other)
  Sender: FDA-Public Use
  Company Number: None

PATIENT
  Age: 72 Year
  Sex: Male
  Weight: 108 kg

DRUGS (6)
  1. KEPPRA [Suspect]
     Active Substance: LEVETIRACETAM
     Indication: Neuropathy peripheral
     Dosage: 500 MG AT NIGHT
     Route: 048
  2. KEPPRA [Suspect]
     Active Substance: LEVETIRACETAM
     Indication: Off label use
  3. BRIVIACT [Suspect]
     Active Substance: BRIVARACETAM
     Indication: Neuropathy peripheral
     Dosage: 25 MILLIGRAM, MORNING
     Route: 048
     Dates: start: 202303
  4. BRIVIACT [Suspect]
     Active Substance: BRIVARACETAM
     Indication: Off label use
  5. DAPSONE\FERROUS OXALATE [Suspect]
     Active Substance: DAPSONE\FERROUS OXALATE
     Indication: Dermatitis bullous
     Dosage: 1.25 COATED TABLET (SCORED TABLET)
     Route: 048
     Dates: end: 20230808
  6. COVERAM [Suspect]
     Active Substance: AMLODIPINE\PERINDOPRIL
     Indication: Hypertension
     Dosage: 10 MILLIGRAM (1 IN THE MORNING)
     Route: 048

REACTIONS (2)
  - Interstitial lung disease [Recovering/Resolving]
  - Off label use [Unknown]

NARRATIVE: CASE EVENT DATE: 20230720
